FAERS Safety Report 5744040-9 (Version None)
Quarter: 2008Q2

REPORT INFORMATION
  Report Type: 
  Country: None (occurrence: None)
  Receive Date: 20080516
  Receipt Date: 20080516
  Transmission Date: 20081010
  Serious: Yes (Disabling, Other)
  Sender: FDA-Public Use
  Company Number: None

PATIENT
  Age: 12 Year
  Sex: Male
  Weight: 56.6996 kg

DRUGS (2)
  1. SINGULAIR [Suspect]
     Indication: ASTHMA
     Dosage: 5 MG ONCE DAILY PO
     Route: 048
     Dates: start: 20060222, end: 20080101
  2. SINGULAIR [Suspect]
     Indication: MULTIPLE ALLERGIES
     Dosage: 5 MG ONCE DAILY PO
     Route: 048
     Dates: start: 20060222, end: 20080101

REACTIONS (10)
  - ABNORMAL BEHAVIOUR [None]
  - ANGER [None]
  - CRYING [None]
  - DEPRESSED MOOD [None]
  - DEPRESSION [None]
  - EDUCATIONAL PROBLEM [None]
  - FEELING ABNORMAL [None]
  - MOOD SWINGS [None]
  - SELF ESTEEM DECREASED [None]
  - WEIGHT INCREASED [None]
